FAERS Safety Report 6446179-1 (Version None)
Quarter: 2009Q4

REPORT INFORMATION
  Report Type: 
  Country: None (occurrence: None)
  Receive Date: 20091119
  Receipt Date: 20091109
  Transmission Date: 20100525
  Serious: Yes (Hospitalization)
  Sender: FDA-Public Use
  Company Number: JP-JNJFOC-20091103565

PATIENT
  Sex: Female
  Weight: 43 kg

DRUGS (11)
  1. DOXORUBICIN HCL [Suspect]
     Route: 042
     Dates: start: 20090619, end: 20090717
  2. DOXORUBICIN HCL [Suspect]
     Indication: OVARIAN CANCER RECURRENT
     Route: 042
     Dates: start: 20090619, end: 20090717
  3. CODEINE PHOSPHATE [Concomitant]
     Route: 048
  4. NAVOBAN [Concomitant]
     Route: 048
  5. NAVOBAN [Concomitant]
     Indication: PROPHYLAXIS
     Route: 048
  6. PYDOXAL [Concomitant]
     Route: 048
  7. PYDOXAL [Concomitant]
     Indication: PROPHYLAXIS
     Route: 048
  8. DECADRON [Concomitant]
     Route: 042
  9. DECADRON [Concomitant]
     Indication: PROPHYLAXIS
     Route: 042
  10. NASEA-OD [Concomitant]
     Route: 048
  11. MUCOSTA [Concomitant]
     Route: 048

REACTIONS (2)
  - OROPHARYNGEAL PAIN [None]
  - RADIATION OESOPHAGITIS [None]
